FAERS Safety Report 5805358-4 (Version None)
Quarter: 2008Q3

REPORT INFORMATION
  Report Type: 
  Country: None (occurrence: None)
  Receive Date: 20080702
  Receipt Date: 20070813
  Transmission Date: 20090109
  Serious: Yes (Other)
  Sender: FDA-Public Use
  Company Number: HQWYE557015AUG07

PATIENT
  Age: 28 Year
  Sex: Female
  Weight: 52.21 kg

DRUGS (1)
  1. ADVIL [Suspect]
     Dosage: 1 TABLET ONCE, ORAL
     Route: 048
     Dates: start: 20070701, end: 20070701

REACTIONS (2)
  - ASTHENIA [None]
  - MUSCLE TIGHTNESS [None]
